FAERS Safety Report 23787991 (Version 1)
Quarter: 2024Q2

REPORT INFORMATION
  Report Type: Spontaneous
  Country: US (occurrence: None)
  Receive Date: 20240425
  Receipt Date: 20240425
  Transmission Date: 20240715
  Serious: No
  Sender: FDA-Public Use
  Company Number: None

PATIENT
  Age: 79 Year
  Sex: Male
  Weight: 64 kg

DRUGS (1)
  1. FUROSEMIDE [Suspect]
     Active Substance: FUROSEMIDE
     Indication: Fluid retention
     Dosage: FREQUENCY : DAILY;?
     Route: 048
     Dates: start: 20220513, end: 20230315

REACTIONS (10)
  - Hypotension [None]
  - Immune-mediated myocarditis [None]
  - Hypercalcaemia [None]
  - Confusional state [None]
  - Haemoglobin decreased [None]
  - Blood urea decreased [None]
  - Blood creatine increased [None]
  - Fatigue [None]
  - Therapy interrupted [None]
  - Bradycardia [None]

NARRATIVE: CASE EVENT DATE: 20230315
